FAERS Safety Report 14925599 (Version 2)
Quarter: 2018Q2

REPORT INFORMATION
  Report Type: Report from Study
  Country: US (occurrence: US)
  Receive Date: 20180522
  Receipt Date: 20180615
  Transmission Date: 20180711
  Serious: Yes (Other)
  Sender: FDA-Public Use
  Company Number: US-PFIZER INC-2017553904

PATIENT
  Age: 49 Year
  Sex: Female

DRUGS (3)
  1. IBRANCE [Suspect]
     Active Substance: PALBOCICLIB
     Indication: BREAST CANCER FEMALE
     Dosage: 125 MG, 1X/DAY (QD)
     Route: 048
     Dates: start: 20171213, end: 201801
  2. IBRANCE [Suspect]
     Active Substance: PALBOCICLIB
     Dosage: 100 MG, 1X/DAY (QD)
     Route: 048
     Dates: start: 20171213
  3. IBRANCE [Suspect]
     Active Substance: PALBOCICLIB
     Dosage: 100 MG, 1X/DAY (QD)
     Route: 048
     Dates: start: 20180119

REACTIONS (18)
  - Oedema peripheral [Recovering/Resolving]
  - Dyspnoea [Unknown]
  - Drug dose omission [Unknown]
  - Haemoglobin decreased [Unknown]
  - Diarrhoea [Recovered/Resolved]
  - Hepatic enzyme increased [Unknown]
  - Cough [Unknown]
  - Blood calcium decreased [Unknown]
  - Back pain [Unknown]
  - Neutrophil count decreased [Unknown]
  - Bone pain [Unknown]
  - Nasal congestion [Recovering/Resolving]
  - Blood homocysteine increased [Unknown]
  - Platelet count decreased [Unknown]
  - White blood cell count decreased [Recovering/Resolving]
  - Fatigue [Not Recovered/Not Resolved]
  - Rhinorrhoea [Recovering/Resolving]
  - Musculoskeletal pain [Unknown]

NARRATIVE: CASE EVENT DATE: 2017
